FAERS Safety Report 5943387-0 (Version None)
Quarter: 2008Q4

REPORT INFORMATION
  Report Type: 
  Country: None (occurrence: None)
  Receive Date: 20081104
  Receipt Date: 20081021
  Transmission Date: 20090506
  Serious: Yes (Hospitalization)
  Sender: FDA-Public Use
  Company Number: 2008AL011309

PATIENT
  Age: 52 Year
  Sex: Male

DRUGS (8)
  1. DIAZEPAM [Suspect]
     Dosage: 1800 MG; X1; PO
     Route: 048
  2. LORAZEPAM [Suspect]
     Dosage: 30 MG; X1; PO
     Route: 048
  3. ESCITALOPRAM [Concomitant]
  4. ZOPICLONE [Concomitant]
  5. MORPHINE [Concomitant]
  6. OXYCOCET [Concomitant]
  7. CELEXA [Concomitant]
  8. OXYCONTIN [Concomitant]

REACTIONS (14)
  - ACTIVATED PARTIAL THROMBOPLASTIN TIME PROLONGED [None]
  - BLOOD BICARBONATE DECREASED [None]
  - BLOOD CREATININE INCREASED [None]
  - BLOOD PH DECREASED [None]
  - BLOOD POTASSIUM INCREASED [None]
  - BLOOD PRESSURE SYSTOLIC DECREASED [None]
  - BUNDLE BRANCH BLOCK RIGHT [None]
  - DRUG SCREEN POSITIVE [None]
  - ELECTROCARDIOGRAM QT PROLONGED [None]
  - HEART RATE DECREASED [None]
  - HYPERKALAEMIA [None]
  - INTERNATIONAL NORMALISED RATIO INCREASED [None]
  - NODAL RHYTHM [None]
  - SINUS TACHYCARDIA [None]
